FAERS Safety Report 7940654-6 (Version None)
Quarter: 2011Q4

REPORT INFORMATION
  Report Type: 
  Country: None (occurrence: None)
  Receive Date: 20111128
  Receipt Date: 20111118
  Transmission Date: 20120403
  Serious: Yes (Hospitalization)
  Sender: FDA-Public Use
  Company Number: JP-JNJFOC-20111001379

PATIENT
  Sex: Female
  Weight: 58 kg

DRUGS (32)
  1. JUVELA [Concomitant]
     Indication: PRODUCT USED FOR UNKNOWN INDICATION
     Route: 048
     Dates: start: 20090528
  2. COSPANON [Concomitant]
     Indication: CHOLELITHIASIS
     Route: 048
     Dates: start: 20090530
  3. ASTOMIN [Concomitant]
     Indication: NASOPHARYNGITIS
     Route: 048
     Dates: start: 20090716
  4. MOTILIUM [Concomitant]
     Indication: PROPHYLAXIS
     Route: 048
     Dates: start: 20090716, end: 20090813
  5. RAMELTEON [Concomitant]
     Route: 042
     Dates: start: 20090625, end: 20090625
  6. AZUNOL [Concomitant]
     Indication: STOMATITIS
     Route: 049
  7. DOXORUBICIN HCL [Suspect]
     Indication: OVARIAN CANCER RECURRENT
     Dosage: CYCLE 1
     Route: 042
     Dates: start: 20090528, end: 20090528
  8. ALL OTHER THERAPEUTIC PRODUCTS [Concomitant]
     Indication: PROPHYLAXIS
     Route: 048
  9. SELBEX [Concomitant]
     Indication: PROPHYLAXIS
     Route: 048
     Dates: start: 20090530, end: 20090629
  10. MUCOSOLVAN [Concomitant]
     Indication: PRODUCT USED FOR UNKNOWN INDICATION
     Route: 048
     Dates: start: 20090730, end: 20090813
  11. VITAMEDIN [Concomitant]
     Indication: STOMATITIS
     Route: 042
     Dates: start: 20090817, end: 20090823
  12. ROCEPHIN [Concomitant]
     Indication: PYREXIA
     Route: 042
     Dates: start: 20090820, end: 20090822
  13. DEXALTIN [Concomitant]
     Indication: STOMATITIS
     Dosage: Q.S
     Route: 049
     Dates: start: 20090611
  14. ASTOMIN [Concomitant]
     Route: 048
  15. LOXONIN [Concomitant]
     Indication: PROPHYLAXIS
     Route: 048
  16. RAMELTEON [Concomitant]
     Indication: PROPHYLAXIS
     Route: 042
     Dates: start: 20090528, end: 20090528
  17. SOLITA- NO 3 [Concomitant]
     Route: 042
     Dates: start: 20090817, end: 20090817
  18. DOXORUBICIN HCL [Suspect]
     Dosage: CYCLE 2
     Route: 042
     Dates: start: 20090625, end: 20090625
  19. DOXORUBICIN HCL [Suspect]
     Dosage: CYCLE 3
     Route: 042
     Dates: start: 20090730, end: 20090730
  20. FLURBIPROFEN [Concomitant]
     Route: 042
     Dates: start: 20090817, end: 20090817
  21. XYLOCAINE [Concomitant]
     Indication: STOMATITIS
     Route: 049
     Dates: start: 20090818
  22. TPN ELECTROLYTES IN PLASTIC CONTAINER [Concomitant]
     Indication: EATING DISORDER
     Route: 042
     Dates: start: 20090818, end: 20090824
  23. BECLOMETHASONE DIPROPIONATE [Concomitant]
     Dosage: Q.S- AS MUCH AS IS SUFFICIENT
     Route: 049
     Dates: start: 20090818, end: 20090824
  24. FURSULTIAMINE [Concomitant]
     Indication: PROPHYLAXIS
     Route: 048
  25. ALL OTHER THERAPEUTIC PRODUCTS [Concomitant]
     Route: 048
  26. URSO 250 [Concomitant]
     Indication: HEPATIC STEATOSIS
     Route: 048
  27. METOPROLOL TARTRATE [Concomitant]
     Indication: HYPERTENSION
     Route: 048
     Dates: start: 20090530
  28. FLAVITAN [Concomitant]
     Indication: STOMATITIS
     Route: 042
     Dates: start: 20090817, end: 20090823
  29. METHYCOBAL [Concomitant]
     Indication: PRODUCT USED FOR UNKNOWN INDICATION
     Route: 048
     Dates: start: 20090528
  30. LIPIDIL [Concomitant]
     Indication: HYPERLIPIDAEMIA
     Route: 048
  31. ALLOPURINOL [Concomitant]
     Indication: PRODUCT USED FOR UNKNOWN INDICATION
     Route: 048
     Dates: start: 20090530
  32. FAMOTIDINE [Concomitant]
     Indication: PROPHYLAXIS
     Route: 048
     Dates: start: 20090716

REACTIONS (2)
  - EATING DISORDER [None]
  - STOMATITIS [None]
